FAERS Safety Report 8407029-7 (Version None)
Quarter: 2012Q2

REPORT INFORMATION
  Report Type: 
  Country: None (occurrence: None)
  Receive Date: 20120604
  Receipt Date: 20120529
  Transmission Date: 20120825
  Serious: Yes (Other)
  Sender: FDA-Public Use
  Company Number: PHEH2012US010974

PATIENT
  Sex: Female

DRUGS (17)
  1. BYSTOLIC [Concomitant]
  2. CADURA [Concomitant]
  3. DIOVAN [Concomitant]
     Dosage: 160 MG, DAILY
  4. LASIX [Concomitant]
  5. VALTURNA [Suspect]
     Dosage: 1 DF (300/ UNKNOWN MG), DAILY
     Dates: start: 20110201
  6. ZOLOFT [Concomitant]
  7. PRAMPERXOLE [Concomitant]
  8. PLAXIX [Concomitant]
  9. VITAMIN D [Concomitant]
  10. FISH OIL [Concomitant]
  11. CALCIUM [Concomitant]
  12. PAMELOR [Concomitant]
  13. ASPIRIN [Concomitant]
  14. CALCITRIOL [Concomitant]
  15. NEXIUM [Concomitant]
  16. CRESTOR [Concomitant]
  17. SINGULAIR [Concomitant]

REACTIONS (8)
  - VARICOSE VEIN RUPTURED [None]
  - HYPERTENSION [None]
  - OEDEMA PERIPHERAL [None]
  - RESPIRATORY FAILURE [None]
  - RASH [None]
  - PRURITUS [None]
  - GAIT DISTURBANCE [None]
  - HAEMOGLOBIN DECREASED [None]
